FAERS Safety Report 17158201 (Version 1)
Quarter: 2019Q4

REPORT INFORMATION
  Report Type: Spontaneous
  Country: US (occurrence: US)
  Receive Date: 20191216
  Receipt Date: 20191216
  Transmission Date: 20200122
  Serious: No
  Sender: FDA-Public Use
  Company Number: US-MYLANLABS-2019M1122020

PATIENT
  Sex: Female
  Weight: 63 kg

DRUGS (2)
  1. ALPRAZOLAM. [Suspect]
     Active Substance: ALPRAZOLAM
     Indication: ANXIETY
     Dosage: 0.5 MILLIGRAM, BID (ONE IN AM AND ONE PM EACH DAY)
  2. AUGMENTIN [Suspect]
     Active Substance: AMOXICILLIN\CLAVULANATE POTASSIUM
     Indication: SINUSITIS
     Dosage: UNK
     Route: 048
     Dates: start: 20191122

REACTIONS (11)
  - Nausea [Unknown]
  - Sinusitis [Not Recovered/Not Resolved]
  - Head discomfort [Unknown]
  - Abdominal discomfort [Unknown]
  - Diarrhoea [Unknown]
  - Musculoskeletal discomfort [Unknown]
  - Musculoskeletal stiffness [Unknown]
  - Eye colour change [Unknown]
  - Cough [Unknown]
  - Headache [Unknown]
  - Vomiting [Unknown]
